FAERS Safety Report 8337533-1 (Version None)
Quarter: 2012Q2

REPORT INFORMATION
  Report Type: 
  Country: None (occurrence: None)
  Receive Date: 20120504
  Receipt Date: 20120502
  Transmission Date: 20120825
  Serious: Yes (Disabling, Other)
  Sender: FDA-Public Use
  Company Number: US-PFIZER INC-2012055516

PATIENT
  Sex: Male
  Weight: 85.261 kg

DRUGS (8)
  1. LIPITOR [Suspect]
     Indication: BLOOD CHOLESTEROL ABNORMAL
     Dosage: 20 MG, 1X/DAY
  2. METFORMIN HCL [Suspect]
     Indication: DIABETES MELLITUS
     Dosage: 1000 MG, 2X/DAY
  3. NEURONTIN [Suspect]
     Indication: NEUROPATHY PERIPHERAL
     Dosage: 800 MG, 3X/DAY
  4. MELOXICAM [Concomitant]
     Dosage: 15 MG, DAILY
  5. TEMAZEPAM [Suspect]
     Indication: SLEEP DISORDER
     Dosage: 30 MG, DAILY
     Dates: start: 20080101
  6. GLUCOTROL XL [Suspect]
     Indication: DIABETES MELLITUS
     Dosage: 5 MG, 1X/DAY
  7. DIOVAN HCT [Concomitant]
     Dosage: VALSARTAN 320MG/ HYDROCHLOROTHIAZIDE 25 MG, DAILY
  8. ASPIRIN [Concomitant]
     Indication: PROPHYLAXIS
     Dosage: 81 MG, 1X/DAY

REACTIONS (11)
  - DYSGRAPHIA [None]
  - INSOMNIA [None]
  - HIP FRACTURE [None]
  - ACCIDENT AT WORK [None]
  - TREMOR [None]
  - MEMORY IMPAIRMENT [None]
  - FOOT FRACTURE [None]
  - DYSSTASIA [None]
  - ENDOCRINE DISORDER [None]
  - PERIPHERAL NERVE INJURY [None]
  - BALANCE DISORDER [None]
